FAERS Safety Report 18483382 (Version 1)
Quarter: 2020Q4

REPORT INFORMATION
  Report Type: Spontaneous
  Country: US (occurrence: US)
  Receive Date: 20201109
  Receipt Date: 20201109
  Transmission Date: 20210114
  Serious: No
  Sender: FDA-Public Use
  Company Number: US-ROCHE-2580740

PATIENT
  Sex: Male
  Weight: 68.1 kg

DRUGS (1)
  1. PULMOZYME [Suspect]
     Active Substance: DORNASE ALFA
     Indication: CYSTIC FIBROSIS
     Dosage: NEBULISER
     Route: 065
     Dates: start: 20170314

REACTIONS (2)
  - Memory impairment [Unknown]
  - Product dose omission issue [Unknown]
